FAERS Safety Report 11992475 (Version 1)
Quarter: 2016Q1

REPORT INFORMATION
  Report Type: Spontaneous
  Country: US (occurrence: None)
  Receive Date: 20160202
  Receipt Date: 20160202
  Transmission Date: 20160526
  Serious: No
  Sender: FDA-Public Use
  Company Number: None

PATIENT
  Age: 26 Year
  Sex: Female
  Weight: 72.58 kg

DRUGS (7)
  1. LEVOTHYROXINE. [Concomitant]
     Active Substance: LEVOTHYROXINE
  2. PREDNISOLONE. [Concomitant]
     Active Substance: PREDNISOLONE
  3. SYSTANE (HYPROMELLOSE 2910 (4000 MPA.S)) [Concomitant]
     Active Substance: HYPROMELLOSE 2910 (4000 MPA.S)
  4. REFRESH P.M. [Concomitant]
     Active Substance: MINERAL OIL\PETROLATUM
  5. SERTRALINE [Concomitant]
     Active Substance: SERTRALINE HYDROCHLORIDE
  6. PREDNISOLONE ACETATE OPHTHALMIC 1% [Suspect]
     Active Substance: PREDNISOLONE ACETATE
     Dates: start: 20160127, end: 20160130
  7. INSULIN [Concomitant]
     Active Substance: INSULIN NOS

REACTIONS (2)
  - Nausea [None]
  - Dysgeusia [None]

NARRATIVE: CASE EVENT DATE: 20160127
